FAERS Safety Report 11344279 (Version 1)
Quarter: 2015Q3

REPORT INFORMATION
  Report Type: Spontaneous
  Country: US (occurrence: None)
  Receive Date: 20150803
  Receipt Date: 20150803
  Transmission Date: 20151125
  Serious: No
  Sender: FDA-Public Use
  Company Number: None

PATIENT
  Age: 42 Year
  Sex: Female
  Weight: 122.47 kg

DRUGS (5)
  1. NADOLOL. [Concomitant]
     Active Substance: NADOLOL
  2. BACTRIM [Suspect]
     Active Substance: SULFAMETHOXAZOLE\TRIMETHOPRIM
     Indication: JOINT SWELLING
     Dosage: 1 PILL TWICE DAILY TAKEN BY MOUTH
     Route: 048
     Dates: start: 20150610, end: 20150611
  3. IRON SUPPLEMENT [Concomitant]
     Active Substance: IRON
  4. ZOLOFT [Concomitant]
     Active Substance: SERTRALINE HYDROCHLORIDE
  5. LAMICTAL [Concomitant]
     Active Substance: LAMOTRIGINE

REACTIONS (19)
  - Headache [None]
  - Dyspnoea [None]
  - Pyrexia [None]
  - Arthralgia [None]
  - Tremor [None]
  - Dizziness [None]
  - Hyperhidrosis [None]
  - Hyperaesthesia [None]
  - Musculoskeletal stiffness [None]
  - Nausea [None]
  - Pain [None]
  - Asthenia [None]
  - Fatigue [None]
  - Vomiting [None]
  - Chromaturia [None]
  - Decreased appetite [None]
  - Chills [None]
  - Confusional state [None]
  - Hypoaesthesia [None]

NARRATIVE: CASE EVENT DATE: 20150611
